FAERS Safety Report 7769487-0 (Version None)
Quarter: 2011Q3

REPORT INFORMATION
  Report Type: 
  Country: None (occurrence: None)
  Receive Date: 20110922
  Receipt Date: 20110526
  Transmission Date: 20111222
  Serious: No
  Sender: FDA-Public Use
  Company Number: US-ASTRAZENECA-2011SE32782

PATIENT
  Age: 48 Year
  Sex: Female

DRUGS (5)
  1. SEROQUEL XR [Suspect]
     Indication: INCREASED APPETITE
     Route: 048
     Dates: start: 20101101
  2. SEROQUEL XR [Suspect]
     Route: 048
  3. SEROQUEL XR [Suspect]
     Route: 048
  4. BLOOD PRESSURE MEDS [Concomitant]
  5. SEROQUEL XR [Suspect]
     Indication: WEIGHT INCREASED
     Route: 048
     Dates: start: 20101101

REACTIONS (5)
  - WEIGHT INCREASED [None]
  - OFF LABEL USE [None]
  - SOMNOLENCE [None]
  - WEIGHT DECREASED [None]
  - EAR INFECTION [None]
